FAERS Safety Report 9716290 (Version 6)
Quarter: 2014Q2

REPORT INFORMATION
  Report Type: Report from Study
  Country: FR (occurrence: FR)
  Receive Date: 20131127
  Receipt Date: 20140403
  Transmission Date: 20141212
  Serious: Yes (Death, Hospitalization)
  Sender: FDA-Public Use
  Company Number: FR-ROCHE-1304937

PATIENT
  Age: 82 Year
  Sex: Female
  Weight: 61 kg

DRUGS (14)
  1. PERTUZUMAB [Suspect]
     Indication: HER-2 POSITIVE BREAST CANCER
     Dosage: LAST DOSE PRIOR TO SAE: 04/NOV/2013.
     Route: 042
     Dates: start: 20131015
  2. PERTUZUMAB [Suspect]
     Dosage: LAST DOSE PRIOR TO SAE: 04/NOV/2013, MAINTENANCE DOSE
     Route: 042
     Dates: start: 20131104
  3. PERTUZUMAB [Suspect]
     Dosage: LAST DOSE PRIOR TO SAE: 04/NOV/2013, MAINTENANCE DOSE
     Route: 042
     Dates: start: 20131205
  4. TAXOL [Suspect]
     Indication: HER-2 POSITIVE BREAST CANCER
     Route: 065
  5. SKENAN [Concomitant]
     Route: 065
     Dates: start: 20130916, end: 20131211
  6. TEMESTA (FRANCE) [Concomitant]
     Route: 065
     Dates: start: 20130314, end: 20131211
  7. VENLAFAXINE [Concomitant]
     Route: 065
     Dates: start: 20130514, end: 20131211
  8. ACTISKENAN [Concomitant]
     Indication: PROPHYLAXIS
     Route: 065
     Dates: start: 20130912, end: 20130920
  9. ACUPAN [Concomitant]
     Indication: PROPHYLAXIS
     Dosage: 20 MG/2 ML DAILY
     Route: 065
     Dates: start: 20130916, end: 20130916
  10. CRESTOR [Concomitant]
     Indication: PROPHYLAXIS
     Route: 065
     Dates: start: 20130702
  11. MACROGOL [Concomitant]
     Indication: PROPHYLAXIS
     Route: 065
     Dates: start: 20130920
  12. LORAZEPAM [Concomitant]
     Indication: PROPHYLAXIS
     Route: 065
     Dates: start: 20130916
  13. VENLAFAXINE [Concomitant]
     Indication: PROPHYLAXIS
     Route: 065
     Dates: start: 20130514, end: 20131002
  14. NASONEX [Concomitant]
     Indication: PROPHYLAXIS
     Route: 065
     Dates: start: 20130702

REACTIONS (1)
  - Asthenia [Fatal]
